FAERS Safety Report 16124984 (Version 2)
Quarter: 2019Q1

REPORT INFORMATION
  Report Type: Spontaneous
  Country: US (occurrence: US)
  Receive Date: 20190327
  Receipt Date: 20190327
  Transmission Date: 20190418
  Serious: Yes (Hospitalization)
  Sender: FDA-Public Use
  Company Number: US-CELGENEUS-USA-20190307452

PATIENT
  Sex: Female

DRUGS (1)
  1. OTEZLA [Suspect]
     Active Substance: APREMILAST
     Indication: PSORIATIC ARTHROPATHY
     Dosage: 60 MILLIGRAM
     Route: 048
     Dates: start: 201607

REACTIONS (5)
  - Drug ineffective [Unknown]
  - Weight decreased [Unknown]
  - Myocardial infarction [Unknown]
  - Diarrhoea [Unknown]
  - Diverticulitis [Unknown]

NARRATIVE: CASE EVENT DATE: 2016
